FAERS Safety Report 4898491-5 (Version None)
Quarter: 2006Q1

REPORT INFORMATION
  Report Type: 
  Country: None (occurrence: None)
  Receive Date: 20060131
  Receipt Date: 20060131
  Transmission Date: 20060701
  Serious: No
  Sender: FDA-Public Use
  Company Number: None

PATIENT
  Age: 60 Year
  Sex: Male

DRUGS (1)
  1. PPD   PARKDALE PPD  LOT 21490  EXP 3/07 [Suspect]
     Indication: EXPOSURE TO COMMUNICABLE DISEASE

REACTIONS (1)
  - INDURATION [None]
